FAERS Safety Report 19708928 (Version 3)
Quarter: 2022Q2

REPORT INFORMATION
  Report Type: Report from Study
  Country: US (occurrence: US)
  Receive Date: 20210816
  Receipt Date: 20220526
  Transmission Date: 20220721
  Serious: Yes (Hospitalization)
  Sender: FDA-Public Use
  Company Number: US-BIOMARINAP-US-2021-137948

PATIENT
  Age: 5 Year
  Sex: Female
  Weight: 19.9 kg

DRUGS (8)
  1. BRINEURA [Suspect]
     Active Substance: CERLIPONASE ALFA
     Indication: Neuronal ceroid lipofuscinosis
     Dosage: 300 MILLIGRAM, QOW
     Route: 020
     Dates: start: 20210722
  2. RISPERDAL [Suspect]
     Active Substance: RISPERIDONE
     Indication: Epileptic encephalopathy
     Dates: start: 20200415
  3. CLOBAZAM [Concomitant]
     Active Substance: CLOBAZAM
     Indication: Epileptic encephalopathy
     Dates: start: 20210427
  4. PERIACTIN [Concomitant]
     Active Substance: CYPROHEPTADINE HYDROCHLORIDE
     Indication: Failure to thrive
     Dates: start: 20210427
  5. DEPAKOTE [Concomitant]
     Active Substance: DIVALPROEX SODIUM
     Indication: Epileptic encephalopathy
     Dates: start: 20210421
  6. PYRIDOXINE [Concomitant]
     Active Substance: PYRIDOXINE
     Indication: Epileptic encephalopathy
     Dates: start: 20210323
  7. KEPPRA [Concomitant]
     Active Substance: LEVETIRACETAM
     Indication: Epileptic encephalopathy
     Dates: start: 20210121
  8. DIASTAT [Concomitant]
     Active Substance: DIAZEPAM
     Indication: Epileptic encephalopathy
     Dates: start: 20200107

REACTIONS (1)
  - Gaze palsy [Recovered/Resolved]

NARRATIVE: CASE EVENT DATE: 20210722
